FAERS Safety Report 11190366 (Version 5)
Quarter: 2015Q3

REPORT INFORMATION
  Report Type: Spontaneous
  Country: US (occurrence: US)
  Receive Date: 20150615
  Receipt Date: 20150910
  Transmission Date: 20151125
  Serious: Yes (Hospitalization, Other)
  Sender: FDA-Public Use
  Company Number: US-PFIZER INC-2015195667

PATIENT
  Age: 71 Year
  Sex: Female

DRUGS (19)
  1. INLYTA [Suspect]
     Active Substance: AXITINIB
     Dosage: 7 MG, 2X/DAY
     Dates: start: 201411
  2. K-DUR [Concomitant]
     Active Substance: POTASSIUM CHLORIDE
     Dosage: 20 MEQ, 1X/DAY
     Route: 048
  3. BENTYL [Concomitant]
     Active Substance: DICYCLOMINE HYDROCHLORIDE
     Indication: DIARRHOEA
     Dosage: 10 MG, 3X/DAY
     Route: 048
  4. FIORICET [Concomitant]
     Active Substance: ACETAMINOPHEN\BUTALBITAL\CAFFEINE
     Indication: HEADACHE
     Dosage: 2 DF, 4X/DAY (BUTALBITAL 50 MG + ACETAMINOPHEN 325 MG + CAFFEINE 40 MG ORAL AS NEEDED FOR PAIN
     Route: 048
  5. FIORICET [Concomitant]
     Active Substance: ACETAMINOPHEN\BUTALBITAL\CAFFEINE
     Indication: PAIN
  6. ULTRAM [Concomitant]
     Active Substance: TRAMADOL HYDROCHLORIDE
     Indication: PAIN
     Dosage: 50 MG, AS NEEDED (EVERY 6 (SIX) HOURS AS NEEDED)
     Route: 048
  7. INLYTA [Suspect]
     Active Substance: AXITINIB
     Dosage: 5 MG, 2X/DAY
  8. PRILOSEC [Concomitant]
     Active Substance: OMEPRAZOLE MAGNESIUM
     Dosage: 40 MG, 1X/DAY
     Route: 048
  9. AUGMENTIN [Concomitant]
     Active Substance: AMOXICILLIN\CLAVULANATE POTASSIUM
     Dosage: 1 DF, 2X/DAY (AMOXICILLIN SODIUM 875 MG + CLAVULANATE POTASSIUM 125 MG) TAKE 1 TABLET BY MOUTH EVERY
     Route: 048
  10. LASIX [Concomitant]
     Active Substance: FUROSEMIDE
     Dosage: 20 MG, 2X/DAY
     Route: 048
  11. SYNTHROID [Concomitant]
     Active Substance: LEVOTHYROXINE SODIUM
     Dosage: 75 ?G, 1X/DAY
     Route: 048
  12. COLACE [Concomitant]
     Active Substance: DOCUSATE SODIUM
     Dosage: 100 MG, UNK
  13. KLOR-CON [Concomitant]
     Active Substance: POTASSIUM CHLORIDE
     Dosage: 20 MEQ, 1X/DAY
     Route: 048
  14. TENORMIN [Concomitant]
     Active Substance: ATENOLOL
     Dosage: 25 MG, UNK
     Route: 048
  15. CATAPRES [Concomitant]
     Active Substance: CLONIDINE HYDROCHLORIDE
     Indication: ESSENTIAL HYPERTENSION
     Dosage: 0.1 MG, 1X/DAY (TAKE 1 TABLET BY MOUTH IN THE EVENING)
  16. ALTACE [Concomitant]
     Active Substance: RAMIPRIL
     Dosage: 5 MG, 1X/DAY
     Route: 048
  17. LOMOTIL [Concomitant]
     Active Substance: ATROPINE SULFATE\DIPHENOXYLATE HYDROCHLORIDE
     Dosage: 1 DF, UNK (ATROPINE SULFATE  0.025+ DIPHENOXYLATE HYDROCHLORIDE 2.5 MG)
     Route: 048
  18. LOCOID [Concomitant]
     Active Substance: HYDROCORTISONE BUTYRATE
     Dosage: 1 %, 2X/DAY
     Route: 061
  19. INLYTA [Suspect]
     Active Substance: AXITINIB
     Dosage: UNK
     Dates: start: 20150624

REACTIONS (13)
  - Renal impairment [Unknown]
  - Hyponatraemia [Unknown]
  - Arthritis [Unknown]
  - Headache [Unknown]
  - Appendicitis perforated [Recovered/Resolved]
  - Diarrhoea [Unknown]
  - Procedural pain [Unknown]
  - Acute kidney injury [Unknown]
  - Abdominal pain lower [Unknown]
  - Colitis [Unknown]
  - Ileus [Unknown]
  - Hypertension [Unknown]
  - Bursitis [Unknown]

NARRATIVE: CASE EVENT DATE: 20150531
